FAERS Safety Report 19501282 (Version 2)
Quarter: 2022Q1

REPORT INFORMATION
  Report Type: Other
  Country: GB (occurrence: GB)
  Receive Date: 20210707
  Receipt Date: 20220326
  Transmission Date: 20220423
  Serious: Yes (Other)
  Sender: FDA-Public Use
  Company Number: None

PATIENT
  Age: 64 Year
  Sex: Female
  Weight: 74.83 kg

DRUGS (5)
  1. PREDNISOLONE [Suspect]
     Active Substance: PREDNISOLONE
     Indication: Colitis ulcerative
     Dosage: UNK, 30MG CASCADING DOWN TO 5MG OVER 6 WEEKS
     Route: 048
     Dates: start: 20210609
  2. ERGOCALCIFEROL [Concomitant]
     Active Substance: ERGOCALCIFEROL
     Indication: Ill-defined disorder
     Dosage: UNK
     Route: 065
  3. NAPROXEN [Concomitant]
     Active Substance: NAPROXEN
     Indication: Ill-defined disorder
     Dosage: UNK
     Route: 065
     Dates: start: 20210416, end: 20210430
  4. OMEPRAZOLE [Concomitant]
     Active Substance: OMEPRAZOLE
     Indication: Ill-defined disorder
     Dosage: UNK
     Route: 065
     Dates: start: 20210416
  5. PENTASA [Concomitant]
     Active Substance: MESALAMINE
     Indication: Ill-defined disorder
     Dosage: UNK
     Route: 065
     Dates: start: 202012

REACTIONS (13)
  - Palpitations [Not Recovered/Not Resolved]
  - Adverse drug reaction [Not Recovered/Not Resolved]
  - Feeling abnormal [Not Recovered/Not Resolved]
  - Dry mouth [Not Recovered/Not Resolved]
  - Dysgeusia [Not Recovered/Not Resolved]
  - Tremor [Not Recovered/Not Resolved]
  - Adverse drug reaction [Not Recovered/Not Resolved]
  - Asthenia [Unknown]
  - Blindness transient [Not Recovered/Not Resolved]
  - Diplopia [Not Recovered/Not Resolved]
  - Halo vision [Not Recovered/Not Resolved]
  - Vision blurred [Not Recovered/Not Resolved]
  - Visual impairment [Not Recovered/Not Resolved]

NARRATIVE: CASE EVENT DATE: 20210609
